FAERS Safety Report 6945896-4 (Version None)
Quarter: 2010Q3

REPORT INFORMATION
  Report Type: 
  Country: None (occurrence: None)
  Receive Date: 20100827
  Receipt Date: 20100817
  Transmission Date: 20110219
  Serious: Yes (Hospitalization)
  Sender: FDA-Public Use
  Company Number: PHHY2010AU56003

PATIENT
  Sex: Female

DRUGS (1)
  1. ZOLEDRONIC [Suspect]
     Dosage: 05 MG
     Route: 042
     Dates: start: 20090813

REACTIONS (3)
  - GENERAL PHYSICAL HEALTH DETERIORATION [None]
  - SEPSIS [None]
  - WEIGHT DECREASED [None]
